FAERS Safety Report 6800971-X (Version None)
Quarter: 2010Q2

REPORT INFORMATION
  Report Type: 
  Country: None (occurrence: None)
  Receive Date: 20100629
  Receipt Date: 20100621
  Transmission Date: 20101027
  Serious: Yes (Hospitalization)
  Sender: FDA-Public Use
  Company Number: US-JNJFOC-20100403585

PATIENT
  Sex: Female
  Weight: 58.97 kg

DRUGS (1)
  1. ORTHO-NOVUM [Suspect]
     Indication: CONTRACEPTION
     Route: 048

REACTIONS (4)
  - APPENDIX DISORDER [None]
  - BLOOD PRESSURE INCREASED [None]
  - MASS [None]
  - THROMBOSIS [None]
